FAERS Safety Report 4279491-5 (Version None)
Quarter: 2004Q1

REPORT INFORMATION
  Report Type: 
  Country: None (occurrence: None)
  Receive Date: 20040126
  Receipt Date: 20040126
  Transmission Date: 20041129
  Serious: No
  Sender: FDA-Public Use
  Company Number: None

PATIENT
  Age: 40 Year
  Sex: Female
  Weight: 54.4316 kg

DRUGS (3)
  1. TOPIRAMATE [Suspect]
     Indication: AFFECTIVE DISORDER
     Dosage: 100 MG 1 TIME DAIL ORAL
     Route: 048
     Dates: start: 20021101, end: 20040120
  2. TOPIRAMATE [Suspect]
     Indication: ANXIETY
     Dosage: 100 MG 1 TIME DAIL ORAL
     Route: 048
     Dates: start: 20021101, end: 20040120
  3. PROZAC [Concomitant]

REACTIONS (4)
  - EYE DISORDER [None]
  - EYE IRRITATION [None]
  - EYE PAIN [None]
  - EYE REDNESS [None]
